FAERS Safety Report 14312228 (Version 1)
Quarter: 2017Q4

REPORT INFORMATION
  Report Type: Spontaneous
  Country: US (occurrence: US)
  Receive Date: 20171220
  Receipt Date: 20171220
  Transmission Date: 20180321
  Serious: No
  Sender: FDA-Public Use
  Company Number: None

PATIENT
  Age: 71 Year
  Sex: Male

DRUGS (1)
  1. SUTENT [Suspect]
     Active Substance: SUNITINIB MALATE
     Indication: RENAL CANCER
     Route: 048
     Dates: start: 20171115, end: 20171216

REACTIONS (4)
  - Tremor [None]
  - Hypertension [None]
  - Constipation [None]
  - Chills [None]

NARRATIVE: CASE EVENT DATE: 20171118
